FAERS Safety Report 8428252-1 (Version None)
Quarter: 2012Q2

REPORT INFORMATION
  Report Type: 
  Country: None (occurrence: None)
  Receive Date: 20120611
  Receipt Date: 20110819
  Transmission Date: 20120825
  Serious: No
  Sender: FDA-Public Use
  Company Number: US-ASTRAZENECA-2011SE45287

PATIENT
  Age: 72 Year
  Sex: Female

DRUGS (5)
  1. ALBUTEROL [Concomitant]
     Indication: ASTHMA
  2. PRADAXA [Concomitant]
     Indication: ANTICOAGULANT THERAPY
  3. PULMICORT FLEXHALER [Suspect]
     Indication: ASTHMA
     Dosage: 2 INHALATIONS BID
     Route: 055
     Dates: start: 20110101, end: 20110401
  4. TAMBECOR [Concomitant]
     Indication: ATRIAL FIBRILLATION
  5. PULMICORT FLEXHALER [Suspect]
     Dosage: 3 INHALATIONS BID
     Route: 055
     Dates: start: 20110401

REACTIONS (1)
  - CHOKING SENSATION [None]
